FAERS Safety Report 21872643 (Version 1)
Quarter: 2023Q1

REPORT INFORMATION
  Report Type: Spontaneous
  Country: GR (occurrence: GR)
  Receive Date: 20230117
  Receipt Date: 20230117
  Transmission Date: 20230418
  Serious: Yes (Hospitalization, Other)
  Sender: FDA-Public Use
  Company Number: GR-BRISTOL-MYERS SQUIBB COMPANY-2023-006431

PATIENT
  Age: 44 Year
  Sex: Female

DRUGS (8)
  1. LUSPATERCEPT [Suspect]
     Active Substance: LUSPATERCEPT
     Indication: Thalassaemia beta
  2. ESTRADIOL [Concomitant]
     Active Substance: ESTRADIOL
     Indication: Product used for unknown indication
  3. PROGESTERONE [Concomitant]
     Active Substance: PROGESTERONE
     Indication: Product used for unknown indication
  4. DESFERAL [Concomitant]
     Active Substance: DEFEROXAMINE MESYLATE
     Indication: Blood iron abnormal
  5. FERRIPROX [Concomitant]
     Active Substance: DEFERIPRONE
     Indication: Blood iron abnormal
  6. LEVOTHYROXINE [Concomitant]
     Active Substance: LEVOTHYROXINE
     Indication: Thyroid disorder
  7. ASPIRIN [Concomitant]
     Active Substance: ASPIRIN
     Indication: Product used for unknown indication
  8. ACTONEL [Concomitant]
     Active Substance: RISEDRONATE SODIUM
     Indication: Osteoporosis

REACTIONS (2)
  - Colitis ischaemic [Recovering/Resolving]
  - Presyncope [Unknown]
